FAERS Safety Report 7715942-9 (Version None)
Quarter: 2011Q3

REPORT INFORMATION
  Report Type: 
  Country: None (occurrence: None)
  Receive Date: 20110829
  Receipt Date: 20110816
  Transmission Date: 20111222
  Serious: Yes (Death, Other)
  Sender: FDA-Public Use
  Company Number: CA-ELI_LILLY_AND_COMPANY-CA201108005402

PATIENT
  Age: 71 Year
  Sex: Male

DRUGS (3)
  1. CALCIUM CARBONATE [Concomitant]
  2. FORTEO [Suspect]
     Indication: OSTEOPOROSIS
     Dosage: 20 UG, QD
     Route: 058
     Dates: start: 20100811
  3. VITAMIN D [Concomitant]

REACTIONS (2)
  - MULTIPLE SCLEROSIS [None]
  - BLADDER CANCER [None]
